FAERS Safety Report 24687055 (Version 1)
Quarter: 2024Q4

REPORT INFORMATION
  Report Type: Spontaneous
  Country: US (occurrence: US)
  Receive Date: 20241202
  Receipt Date: 20241202
  Transmission Date: 20250114
  Serious: Yes (Other)
  Sender: PFIZER
  Company Number: US-PFIZER INC-PV202400155948

PATIENT
  Age: 72 Year
  Sex: Female
  Weight: 72.71 kg

DRUGS (1)
  1. IBRANCE [Suspect]
     Active Substance: PALBOCICLIB
     Indication: Neoplasm malignant
     Dosage: TAKE 1 TABLET (100 MG TOTAL) BY MOUTH DAILY, TAKE ON DAYS 1 THRU 21 OF EACH 28 DAY CYCLE.
     Route: 048

REACTIONS (1)
  - Neutropenia [Unknown]
